FAERS Safety Report 21973071 (Version 1)
Quarter: 2023Q1

REPORT INFORMATION
  Report Type: Spontaneous
  Country: DE (occurrence: DE)
  Receive Date: 20230209
  Receipt Date: 20230209
  Transmission Date: 20230417
  Serious: Yes (Congenital Anomaly)
  Sender: FDA-Public Use
  Company Number: DE-EMBRYOTOX-202117383

PATIENT
  Age: 1 Day
  Sex: Male
  Weight: 3.235 kg

DRUGS (7)
  1. LEVOMEPROMAZINE [Suspect]
     Active Substance: LEVOMEPROMAZINE
     Indication: Borderline personality disorder
     Dosage: 50 MILLIGRAM, QD, (50 [MG/D ])
     Route: 064
     Dates: start: 20210421, end: 20220113
  2. ARIPIPRAZOLE [Suspect]
     Active Substance: ARIPIPRAZOLE
     Indication: Borderline personality disorder
     Dosage: 5 MILLIGRAM, QD(5 [MG/D ])
     Route: 064
     Dates: start: 20210421, end: 20220118
  3. COMIRNATY [Suspect]
     Active Substance: TOZINAMERAN
     Indication: COVID-19 immunisation
     Dosage: UNK
     Route: 064
     Dates: start: 20210720, end: 20210720
  4. LITHIUM CARBONATE [Suspect]
     Active Substance: LITHIUM CARBONATE
     Indication: Schizoaffective disorder
     Dosage: 900 MILLIGRAM, QD(900 [MG/D ])
     Route: 064
     Dates: start: 20210421, end: 20220106
  5. COMIRNATY [Concomitant]
     Active Substance: TOZINAMERAN
     Indication: COVID-19 immunisation
     Dosage: UNK
     Route: 063
  6. COMIRNATY [Concomitant]
     Active Substance: TOZINAMERAN
     Indication: COVID-19 immunisation
     Dosage: UNK
     Route: 064
     Dates: start: 20210824, end: 20210824
  7. IBUPROFEN [Concomitant]
     Active Substance: IBUPROFEN
     Indication: Headache
     Dosage: UNK, PRN (IF REQUIRED)
     Route: 064

REACTIONS (3)
  - Hypospadias [Not Recovered/Not Resolved]
  - Cerebral calcification [Recovered/Resolved]
  - Foetal exposure during pregnancy [Unknown]

NARRATIVE: CASE EVENT DATE: 20220101
